FAERS Safety Report 9389029 (Version 1)
Quarter: 2013Q3

REPORT INFORMATION
  Report Type: Spontaneous
  Country: NO (occurrence: NO)
  Receive Date: 20130708
  Receipt Date: 20130708
  Transmission Date: 20140515
  Serious: Yes (Death, Hospitalization, Other)
  Sender: FDA-Public Use
  Company Number: NO-ACTAVIS-2013-11939

PATIENT
  Age: 58 Year
  Sex: Female

DRUGS (6)
  1. DOCETAXEL (UNKNOWN) [Suspect]
     Indication: BREAST CANCER
     Dosage: 100 MG/M2, Q2W, INJECTIONS, FOUR COURSES
     Route: 042
  2. EPIRUBICIN [Concomitant]
     Indication: BREAST CANCER
     Dosage: 60 MG/M2, Q2W, FOUR COURSES
     Route: 042
  3. DEXAMETHASONE [Concomitant]
     Indication: PRODUCT USED FOR UNKNOWN INDICATION
     Dosage: UNKNOWN
     Route: 065
  4. ONDANSETRON [Concomitant]
     Indication: PRODUCT USED FOR UNKNOWN INDICATION
     Dosage: UNKNOWN
     Route: 065
  5. PEGFILGRASTIM [Concomitant]
     Indication: PRODUCT USED FOR UNKNOWN INDICATION
     Dosage: 6 MG, 24 HOURS AFTER ALL COURSES
     Route: 058
  6. APREPITANT [Concomitant]
     Indication: PRODUCT USED FOR UNKNOWN INDICATION
     Dosage: UNKNOWN
     Route: 065

REACTIONS (6)
  - Interstitial lung disease [Fatal]
  - Respiratory failure [Fatal]
  - Pneumothorax [Fatal]
  - Pneumopericardium [Fatal]
  - Pneumomediastinum [Fatal]
  - Palmar-plantar erythrodysaesthesia syndrome [Unknown]
